FAERS Safety Report 23494204 (Version 3)
Quarter: 2025Q2

REPORT INFORMATION
  Report Type: Spontaneous
  Country: US (occurrence: US)
  Receive Date: 20240207
  Receipt Date: 20250417
  Transmission Date: 20250717
  Serious: Yes (Hospitalization, Other)
  Sender: ROCHE
  Company Number: US-ROCHE-3504553

PATIENT
  Age: 19 Month
  Sex: Male
  Weight: 11.4 kg

DRUGS (7)
  1. HEMLIBRA [Suspect]
     Active Substance: EMICIZUMAB-KXWH
     Indication: Factor VIII deficiency
     Dosage: STRENGTH: 30MG/ML
     Route: 058
     Dates: start: 20221025
  2. HEMLIBRA [Suspect]
     Active Substance: EMICIZUMAB-KXWH
     Dosage: STRENGTH: 60MG/0.4ML
     Route: 058
     Dates: start: 20221004
  3. HEMLIBRA [Suspect]
     Active Substance: EMICIZUMAB-KXWH
     Route: 058
  4. HEMLIBRA [Suspect]
     Active Substance: EMICIZUMAB-KXWH
     Dosage: STRENGTH: 60MG/0.4ML
     Route: 058
     Dates: start: 20221004
  5. AMINOCAPROIC ACID (AMICAR) [Concomitant]
     Route: 048
  6. AMICAR [Concomitant]
     Active Substance: AMINOCAPROIC ACID
  7. FLUTICASONE PROPINONATE (FLOVENT HFA) [Concomitant]
     Route: 055

REACTIONS (17)
  - Haemorrhage [Recovered/Resolved]
  - Fall [Unknown]
  - Avulsion fracture [Recovered/Resolved]
  - Haemorrhage [Recovered/Resolved]
  - Joint swelling [Recovered/Resolved]
  - Haematocrit decreased [Unknown]
  - Platelet count increased [Unknown]
  - Monocyte count increased [Unknown]
  - Red blood cell sedimentation rate decreased [Unknown]
  - Blood sodium decreased [Unknown]
  - Carbon dioxide decreased [Unknown]
  - Blood creatinine decreased [Unknown]
  - Blood urea nitrogen/creatinine ratio increased [Unknown]
  - Haematoma [Unknown]
  - Lip injury [Unknown]
  - Tongue haemorrhage [Unknown]
  - Haemoglobin decreased [Unknown]

NARRATIVE: CASE EVENT DATE: 20240130
